FAERS Safety Report 4507812-4 (Version None)
Quarter: 2004Q4

REPORT INFORMATION
  Report Type: 
  Country: None (occurrence: None)
  Receive Date: 20041123
  Receipt Date: 20041115
  Transmission Date: 20050328
  Serious: Yes (Hospitalization)
  Sender: FDA-Public Use
  Company Number: US-AMGEN-US096398

PATIENT
  Sex: Female
  Weight: 69 kg

DRUGS (3)
  1. EPOGEN [Suspect]
     Indication: DIALYSIS
  2. CARNITINE [Concomitant]
  3. IRON [Concomitant]

REACTIONS (2)
  - IRON DEFICIENCY ANAEMIA [None]
  - THERAPEUTIC RESPONSE DECREASED [None]
